FAERS Safety Report 5658485-9 (Version None)
Quarter: 2008Q1

REPORT INFORMATION
  Report Type: 
  Country: None (occurrence: None)
  Receive Date: 20080310
  Receipt Date: 20070225
  Transmission Date: 20080703
  Serious: No
  Sender: FDA-Public Use
  Company Number: US-BAYER-200710603BCC

PATIENT
  Age: 35 Year
  Sex: Female
  Weight: 66 kg

DRUGS (2)
  1. ALEVE [Suspect]
     Indication: DEPRESSION
     Dosage: UNIT DOSE: 220 MG
     Route: 048
     Dates: start: 20070225
  2. ANTIDEPRESSANT [Concomitant]

REACTIONS (3)
  - DEPRESSION [None]
  - NO ADVERSE EVENT [None]
  - OVERDOSE [None]
